FAERS Safety Report 21006852 (Version 1)
Quarter: 2022Q2

REPORT INFORMATION
  Report Type: Report from Study
  Country: US (occurrence: US)
  Receive Date: 20220625
  Receipt Date: 20220625
  Transmission Date: 20220721
  Serious: Yes (Hospitalization)
  Sender: FDA-Public Use
  Company Number: US-BRISTOL-MYERS SQUIBB COMPANY-2022-052107

PATIENT
  Age: 78 Year
  Sex: Female
  Weight: 76.66 kg

DRUGS (2)
  1. REVLIMID [Suspect]
     Active Substance: LENALIDOMIDE
     Indication: Diffuse large B-cell lymphoma
  2. XOLAIR [Concomitant]
     Active Substance: OMALIZUMAB

REACTIONS (3)
  - Fall [Unknown]
  - Back injury [Recovering/Resolving]
  - Intentional product use issue [Unknown]
